FAERS Safety Report 7861420-6 (Version None)
Quarter: 2011Q4

REPORT INFORMATION
  Report Type: 
  Country: None (occurrence: None)
  Receive Date: 20111027
  Receipt Date: 20111019
  Transmission Date: 20120403
  Serious: Yes (Hospitalization)
  Sender: FDA-Public Use
  Company Number: GB-BAXTER-2011BH033115

PATIENT
  Age: 32 Month
  Sex: Female
  Weight: 11 kg

DRUGS (19)
  1. IFOSFAMIDE [Suspect]
     Indication: SARCOMA METASTATIC
     Route: 042
     Dates: start: 20110712
  2. MESNA [Suspect]
     Indication: SARCOMA METASTATIC
     Route: 042
     Dates: start: 20110712
  3. DOXORUBICIN HCL [Suspect]
     Indication: SARCOMA METASTATIC
     Route: 042
     Dates: start: 20110712
  4. ONDANSETRON [Concomitant]
     Indication: PRODUCT USED FOR UNKNOWN INDICATION
     Route: 048
     Dates: start: 20110901, end: 20110907
  5. LEVOMEPROMAZINE [Concomitant]
     Indication: PRODUCT USED FOR UNKNOWN INDICATION
     Route: 042
     Dates: start: 20110713
  6. IFOSFAMIDE [Suspect]
     Route: 042
     Dates: start: 20110712
  7. VINCRISTINE SULFATE [Suspect]
     Indication: SARCOMA METASTATIC
     Route: 042
     Dates: start: 20110712
  8. DACTINOMYCIN [Suspect]
     Route: 042
     Dates: start: 20110712
  9. COTRIM [Concomitant]
     Indication: PRODUCT USED FOR UNKNOWN INDICATION
     Route: 048
     Dates: start: 20110716
  10. MESNA [Suspect]
     Route: 042
     Dates: start: 20110712
  11. ACETAMINOPHEN [Concomitant]
     Indication: PRODUCT USED FOR UNKNOWN INDICATION
     Route: 048
  12. MOVIPREP [Concomitant]
     Indication: PRODUCT USED FOR UNKNOWN INDICATION
     Route: 065
     Dates: start: 20110820
  13. MOVIPREP [Concomitant]
     Route: 065
     Dates: start: 20110901, end: 20110907
  14. MESNA [Suspect]
     Route: 042
     Dates: start: 20110712
  15. DOXORUBICIN HCL [Suspect]
     Route: 042
     Dates: start: 20110712
  16. DOCUSATE [Concomitant]
     Indication: PRODUCT USED FOR UNKNOWN INDICATION
     Route: 048
     Dates: start: 20110714
  17. BEVACIZUMAB [Suspect]
     Indication: SARCOMA METASTATIC
     Route: 042
     Dates: start: 20110712
  18. DACTINOMYCIN [Suspect]
     Indication: SARCOMA METASTATIC
     Route: 042
     Dates: start: 20110712
  19. FLUCONAZOLE [Concomitant]
     Indication: PRODUCT USED FOR UNKNOWN INDICATION
     Route: 042

REACTIONS (4)
  - MUCOSAL INFLAMMATION [None]
  - FEBRILE NEUTROPENIA [None]
  - EPISTAXIS [None]
  - FUNGAEMIA [None]
